FAERS Safety Report 12218052 (Version 2)
Quarter: 2016Q2

REPORT INFORMATION
  Report Type: Spontaneous
  Country: US (occurrence: US)
  Receive Date: 20160329
  Receipt Date: 20160414
  Transmission Date: 20160815
  Serious: No
  Sender: FDA-Public Use
  Company Number: US-PFIZER INC-2016149371

PATIENT

DRUGS (1)
  1. ATORVASTATIN CALCIUM. [Suspect]
     Active Substance: ATORVASTATIN CALCIUM
     Dosage: UNK

REACTIONS (1)
  - Drug intolerance [Unknown]
